FAERS Safety Report 6083132-4 (Version None)
Quarter: 2009Q1

REPORT INFORMATION
  Report Type: 
  Country: None (occurrence: None)
  Receive Date: 20090213
  Receipt Date: 20090213
  Transmission Date: 20090719
  Serious: Yes (Hospitalization)
  Sender: FDA-Public Use
  Company Number: None

PATIENT
  Age: 42 Year
  Sex: Female

DRUGS (2)
  1. CYMBALTA [Suspect]
  2. WELLBUTRIN XL [Suspect]

REACTIONS (4)
  - FALL [None]
  - GRAND MAL CONVULSION [None]
  - HUMERUS FRACTURE [None]
  - SOMNOLENCE [None]
